FAERS Safety Report 20623225 (Version 1)
Quarter: 2022Q1

REPORT INFORMATION
  Report Type: Spontaneous
  Country: US (occurrence: None)
  Receive Date: 20220322
  Receipt Date: 20220322
  Transmission Date: 20220423
  Serious: Yes (Hospitalization)
  Sender: FDA-Public Use
  Company Number: None

PATIENT
  Sex: Female

DRUGS (1)
  1. BOTOX [Suspect]
     Active Substance: ONABOTULINUMTOXINA
     Indication: Migraine without aura
     Dosage: OTHER STRENGTH : 200 UNITS;?OTHER QUANTITY : 200 UNIT;?OTHER FREQUENCY : EVERY 90 DAYS;?
     Route: 030
     Dates: start: 20210804

REACTIONS (1)
  - Osteoporosis [None]
